FAERS Safety Report 21333217 (Version 1)
Quarter: 2022Q3

REPORT INFORMATION
  Report Type: Report from Study
  Country: US (occurrence: US)
  Receive Date: 20220914
  Receipt Date: 20220914
  Transmission Date: 20221027
  Serious: Yes (Other)
  Sender: FDA-Public Use
  Company Number: US-BRISTOL-MYERS SQUIBB COMPANY-2022-104442

PATIENT
  Age: 88 Year
  Sex: Female
  Weight: 63.5 kg

DRUGS (7)
  1. ELIQUIS [Suspect]
     Active Substance: APIXABAN
     Indication: Cerebrovascular accident prophylaxis
     Dosage: DOSE : 5MG;     FREQ : TWICE DAILY
     Route: 048
     Dates: start: 202202
  2. ASPIRIN [Concomitant]
     Active Substance: ASPIRIN
  3. FUROSEMIDE [Concomitant]
     Active Substance: FUROSEMIDE
  4. OLMESARTAN [Concomitant]
     Active Substance: OLMESARTAN
  5. ATORVASTATIN [Concomitant]
     Active Substance: ATORVASTATIN
  6. GABAPENTIN [Concomitant]
     Active Substance: GABAPENTIN
  7. OMEPRAZOLE [Concomitant]
     Active Substance: OMEPRAZOLE

REACTIONS (1)
  - Cardiac valve disease [Unknown]
